FAERS Safety Report 9248911 (Version 1)
Quarter: 2013Q2

REPORT INFORMATION
  Report Type: Spontaneous
  Country: US (occurrence: US)
  Receive Date: 20130423
  Receipt Date: 20130423
  Transmission Date: 20140414
  Serious: Yes (Other)
  Sender: FDA-Public Use
  Company Number: US-BAYER-2013-049301

PATIENT
  Age: 60 Year
  Sex: Female

DRUGS (2)
  1. CIPROFLOXACIN [Suspect]
     Indication: UROSEPSIS
  2. PIPERACILLIN W/TAZOBACTAM [Concomitant]
     Indication: UROSEPSIS

REACTIONS (6)
  - Escherichia urinary tract infection [Recovered/Resolved]
  - Bacteriuria [Recovered/Resolved]
  - Drug resistance [None]
  - Wheezing [None]
  - Tachycardia [None]
  - Hypertension [None]
